FAERS Safety Report 5941386-6 (Version None)
Quarter: 2008Q4

REPORT INFORMATION
  Report Type: 
  Country: None (occurrence: None)
  Receive Date: 20081105
  Receipt Date: 20081030
  Transmission Date: 20090506
  Serious: Yes (Other)
  Sender: FDA-Public Use
  Company Number: US-JNJFOC-20081100391

PATIENT
  Sex: Female
  Weight: 134.27 kg

DRUGS (7)
  1. CONCERTA [Suspect]
     Route: 048
  2. CONCERTA [Suspect]
     Indication: ATTENTION DEFICIT/HYPERACTIVITY DISORDER
     Route: 048
  3. ZOLOFT [Concomitant]
     Route: 048
  4. ZOLOFT [Concomitant]
     Indication: POST-TRAUMATIC STRESS DISORDER
     Route: 048
  5. TRILEPTAL [Concomitant]
     Indication: MOOD SWINGS
     Route: 048
  6. ENABLEX [Concomitant]
     Indication: BLADDER DISORDER
     Route: 048
  7. DANAZOL [Concomitant]
     Indication: ENDOMETRIOSIS
     Route: 048

REACTIONS (6)
  - INTENTIONAL SELF-INJURY [None]
  - NERVOUSNESS [None]
  - ONYCHOPHAGIA [None]
  - PSYCHOTIC DISORDER [None]
  - TOBACCO USER [None]
  - WEIGHT DECREASED [None]
